FAERS Safety Report 9310429 (Version 6)
Quarter: 2014Q1

REPORT INFORMATION
  Report Type: Report from Study
  Country: MX (occurrence: MX)
  Receive Date: 20130527
  Receipt Date: 20140217
  Transmission Date: 20141002
  Serious: Yes (Hospitalization, Other)
  Sender: FDA-Public Use
  Company Number: PHHY2013MX045344

PATIENT
  Age: 22 Year
  Sex: Female

DRUGS (4)
  1. GILENYA [Suspect]
     Indication: MULTIPLE SCLEROSIS
     Dosage: 0.5 MG, QD
     Route: 048
     Dates: start: 201211, end: 20130916
  2. GILENYA [Suspect]
     Dosage: 0.5 MG, UNK
     Route: 048
  3. PARACETAMOL [Concomitant]
  4. PHENYTOIN [Concomitant]
     Indication: CONVULSION
     Route: 048
     Dates: start: 201212

REACTIONS (25)
  - Spinal pain [Recovered/Resolved]
  - Convulsion [Recovered/Resolved]
  - Asthenia [Recovered/Resolved]
  - Paralysis [Not Recovered/Not Resolved]
  - Anuria [Not Recovered/Not Resolved]
  - Urine output decreased [Not Recovered/Not Resolved]
  - Polymenorrhoea [Not Recovered/Not Resolved]
  - Menstrual disorder [Not Recovered/Not Resolved]
  - Head injury [Not Recovered/Not Resolved]
  - Fall [Not Recovered/Not Resolved]
  - Multiple sclerosis [Not Recovered/Not Resolved]
  - Gait disturbance [Not Recovered/Not Resolved]
  - Balance disorder [Not Recovered/Not Resolved]
  - Hypoaesthesia oral [Not Recovered/Not Resolved]
  - Eye movement disorder [Not Recovered/Not Resolved]
  - Myopia [Not Recovered/Not Resolved]
  - Cognitive disorder [Recovered/Resolved]
  - Anxiety [Not Recovered/Not Resolved]
  - Vomiting [Recovered/Resolved]
  - Malaise [Unknown]
  - Pain in extremity [Not Recovered/Not Resolved]
  - Aphasia [Not Recovered/Not Resolved]
  - Dizziness [Not Recovered/Not Resolved]
  - Viral infection [Not Recovered/Not Resolved]
  - Overdose [Unknown]
